FAERS Safety Report 10695187 (Version 1)
Quarter: 2015Q1

REPORT INFORMATION
  Report Type: Spontaneous
  Country: BR (occurrence: None)
  Receive Date: 20150106
  Receipt Date: 20150106
  Transmission Date: 20150721
  Serious: Yes (Other)
  Sender: FDA-Public Use
  Company Number: BR-TORRENT-00002758

PATIENT
  Age: 82 Year
  Sex: Male

DRUGS (4)
  1. CYMBALTA [Concomitant]
     Active Substance: DULOXETINE HYDROCHLORIDE
  2. FRISIUM [Concomitant]
     Active Substance: CLOBAZAM
  3. LUMIGAN [Concomitant]
     Active Substance: BIMATOPROST
  4. TORLOS-H (INN:LOSARTAN / HYDROCHLOROTHIAZIDE) [Suspect]
     Active Substance: HYDROCHLOROTHIAZIDE\LOSARTAN
     Indication: HYPERTENSION
     Dosage: ONCE DAILY
     Route: 048
     Dates: start: 2012

REACTIONS (3)
  - Malignant melanoma [None]
  - Anxiety [None]
  - Hypotension [None]

NARRATIVE: CASE EVENT DATE: 201411
